FAERS Safety Report 24061289 (Version 1)
Quarter: 2024Q3

REPORT INFORMATION
  Report Type: Spontaneous
  Country: US (occurrence: US)
  Receive Date: 20240708
  Receipt Date: 20240708
  Transmission Date: 20241017
  Serious: No
  Sender: INCYTE
  Company Number: US-INCYTE CORPORATION-2024IN006932

PATIENT

DRUGS (1)
  1. JAKAFI [Suspect]
     Active Substance: RUXOLITINIB
     Indication: Polycythaemia vera
     Dosage: 5 MILLIGRAM, BID
     Route: 048

REACTIONS (4)
  - Fall [Recovered/Resolved]
  - Eye contusion [Recovered/Resolved]
  - Gait disturbance [Recovered/Resolved]
  - Contusion [Recovered/Resolved]
